FAERS Safety Report 4735940-7 (Version None)
Quarter: 2005Q3

REPORT INFORMATION
  Report Type: 
  Country: None (occurrence: None)
  Receive Date: 20050805
  Receipt Date: 20050802
  Transmission Date: 20060218
  Serious: Yes (Hospitalization)
  Sender: FDA-Public Use
  Company Number: GB-MERCK-0508GBR00022

PATIENT
  Age: 82 Year
  Sex: Male

DRUGS (12)
  1. INDOCIN [Suspect]
     Indication: GOUT
     Route: 048
     Dates: start: 20050622, end: 20050702
  2. WARFARIN [Concomitant]
     Indication: CARDIAC FIBRILLATION
     Route: 048
  3. WARFARIN [Concomitant]
     Route: 048
  4. BISOPROLOL [Concomitant]
     Indication: CARDIAC FAILURE CONGESTIVE
     Route: 048
  5. BISOPROLOL [Concomitant]
     Indication: CARDIAC FIBRILLATION
     Route: 048
  6. PIOGLITAZONE HYDROCHLORIDE [Concomitant]
     Indication: DIABETES MELLITUS NON-INSULIN-DEPENDENT
     Route: 048
  7. FUROSEMIDE [Concomitant]
     Indication: CARDIAC FAILURE CONGESTIVE
     Route: 048
  8. ZOCOR [Concomitant]
     Indication: BLOOD CHOLESTEROL ABNORMAL
     Route: 048
  9. ENALAPRIL MALEATE [Concomitant]
     Indication: DIABETES MELLITUS NON-INSULIN-DEPENDENT
     Route: 048
  10. ENALAPRIL MALEATE [Concomitant]
     Indication: BLOOD PRESSURE ABNORMAL
     Route: 048
  11. GLICLAZIDE [Concomitant]
     Indication: DIABETES MELLITUS NON-INSULIN-DEPENDENT
     Route: 048
  12. ACETAMINOPHEN AND PROPOXYPHENE HYDROCHLORIDE [Concomitant]
     Indication: PAIN
     Route: 048

REACTIONS (5)
  - CARDIAC FAILURE CONGESTIVE [None]
  - DYSPNOEA [None]
  - ORTHOPNOEA [None]
  - PALPITATIONS [None]
  - PITTING OEDEMA [None]
